FAERS Safety Report 8579699-4 (Version None)
Quarter: 2012Q2

REPORT INFORMATION
  Report Type: 
  Country: None (occurrence: None)
  Receive Date: 20120423
  Receipt Date: 20090521
  Transmission Date: 20120825
  Serious: Yes (Other)
  Sender: FDA-Public Use
  Company Number: PHHY2009US66559

PATIENT
  Age: 44 Year
  Sex: Female

DRUGS (1)
  1. EXJADE [Suspect]
     Dosage: 1000 MG, QD, ORAL
     Route: 048

REACTIONS (3)
  - DIARRHOEA [None]
  - ABDOMINAL PAIN [None]
  - NAUSEA [None]
